FAERS Safety Report 7274428-9 (Version None)
Quarter: 2011Q1

REPORT INFORMATION
  Report Type: 
  Country: None (occurrence: None)
  Receive Date: 20110204
  Receipt Date: 20110125
  Transmission Date: 20110831
  Serious: Yes (Other)
  Sender: FDA-Public Use
  Company Number: CA-JNJFOC-20110107453

PATIENT
  Sex: Female
  Weight: 64.4 kg

DRUGS (6)
  1. REMICADE [Suspect]
     Indication: RHEUMATOID ARTHRITIS
     Route: 042
  2. REMICADE [Suspect]
     Route: 042
  3. LUTEIN [Concomitant]
     Route: 065
  4. MULTI-VITAMINS [Concomitant]
     Route: 065
  5. METHOTREXATE [Concomitant]
     Route: 065
  6. FOLIC ACID [Concomitant]
     Route: 065

REACTIONS (1)
  - KNEE ARTHROPLASTY [None]
